FAERS Safety Report 5622900-7 (Version None)
Quarter: 2008Q1

REPORT INFORMATION
  Report Type: 
  Country: None (occurrence: None)
  Receive Date: 20080212
  Receipt Date: 20080129
  Transmission Date: 20080703
  Serious: Yes (Hospitalization, Other)
  Sender: FDA-Public Use
  Company Number: US-ELI_LILLY_AND_COMPANY-US200801006337

PATIENT
  Sex: Male

DRUGS (11)
  1. FORTEO [Suspect]
     Indication: OSTEOPOROSIS
     Route: 058
     Dates: start: 20060101
  2. LOPRESSOR [Concomitant]
     Dosage: 50 MG, 2/D
  3. IMDUR [Concomitant]
     Dosage: 30 MG, DAILY (1/D)
  4. ASPIRIN [Concomitant]
     Dosage: 81 MG, DAILY (1/D)
  5. GLUCOTROL XL [Concomitant]
     Dosage: 2.5 MG, DAILY (1/D)
  6. ZOCOR [Concomitant]
     Dosage: 40 MG, DAILY (1/D)
  7. LISINOPRIL [Concomitant]
     Dosage: 10 MG, DAILY (1/D)
  8. CARDIZEM [Concomitant]
     Dosage: 120 MG, DAILY (1/D)
  9. LASIX [Concomitant]
     Dosage: 20 MG, DAILY (1/D)
  10. MULTI-VITAMIN [Concomitant]
  11. OSCAL [Concomitant]
     Dosage: UNK, 2/D

REACTIONS (4)
  - AORTIC STENOSIS [None]
  - BLOOD PRESSURE INCREASED [None]
  - CARDIAC DISORDER [None]
  - CHEST PAIN [None]
